FAERS Safety Report 14679120 (Version 2)
Quarter: 2018Q2

REPORT INFORMATION
  Report Type: Spontaneous
  Country: GB (occurrence: GB)
  Receive Date: 20180326
  Receipt Date: 20180503
  Transmission Date: 20180711
  Serious: Yes (Hospitalization, Disabling, Other)
  Sender: FDA-Public Use
  Company Number: PHHY2018GB051879

PATIENT
  Age: 24 Year
  Sex: Male
  Weight: 78.2 kg

DRUGS (4)
  1. TRAMETINIB [Suspect]
     Active Substance: TRAMETINIB
     Dosage: 2 MG, QD
     Route: 048
     Dates: start: 20180201
  2. DABRAFENIB [Suspect]
     Active Substance: DABRAFENIB
     Indication: GLIOBLASTOMA MULTIFORME
     Dosage: 300 MG, QD
     Route: 048
     Dates: start: 20161114, end: 20170116
  3. DABRAFENIB [Suspect]
     Active Substance: DABRAFENIB
     Dosage: 300 MG, QD
     Route: 048
     Dates: start: 20180201
  4. TRAMETINIB [Suspect]
     Active Substance: TRAMETINIB
     Indication: GLIOBLASTOMA MULTIFORME
     Dosage: 2 MG, QD
     Route: 048
     Dates: start: 20161114, end: 20170116

REACTIONS (5)
  - Haemorrhage [Recovered/Resolved with Sequelae]
  - Hemiparesis [Recovering/Resolving]
  - Glioblastoma multiforme [Not Recovered/Not Resolved]
  - Malignant neoplasm progression [Not Recovered/Not Resolved]
  - Product use in unapproved indication [Unknown]

NARRATIVE: CASE EVENT DATE: 20171219
